FAERS Safety Report 9492844 (Version 1)
Quarter: 2013Q3

REPORT INFORMATION
  Report Type: Spontaneous
  Country: NL (occurrence: NL)
  Receive Date: 20130831
  Receipt Date: 20130831
  Transmission Date: 20140515
  Serious: Yes (Death)
  Sender: FDA-Public Use
  Company Number: NL-AMGEN-NLDSP2013060378

PATIENT
  Age: 67 Year
  Sex: Male

DRUGS (8)
  1. XGEVA [Suspect]
     Indication: BONE DISORDER
     Dosage: 120 MG, Q4WK
     Route: 065
     Dates: start: 20130604
  2. CALCICHEW D3 [Concomitant]
     Dosage: 500 MG, UNK
  3. OXYNORM [Concomitant]
     Dosage: 5 MG, UNK
  4. OXYCODON [Concomitant]
     Dosage: 5 MG, UNK
  5. DICLOFENAC SODIUM [Concomitant]
     Dosage: 50 MG, PATCH UNK
  6. MICARDIS [Concomitant]
     Dosage: 80 MG, UNK
  7. TRAMADOL HCL [Concomitant]
     Dosage: 50 MG, PATCHUNK
  8. BISACODYL [Concomitant]
     Dosage: 5 MG, PATCH UNK

REACTIONS (1)
  - Death [Fatal]
